FAERS Safety Report 25425815 (Version 1)
Quarter: 2025Q2

REPORT INFORMATION
  Report Type: Spontaneous
  Country: CN (occurrence: CN)
  Receive Date: 20250611
  Receipt Date: 20250611
  Transmission Date: 20250717
  Serious: Yes (Other)
  Sender: CSL BEHRING
  Company Number: CN-BEH-2025208939

PATIENT
  Age: 86 Year
  Sex: Male
  Weight: 67.5 kg

DRUGS (2)
  1. ALBURX [Suspect]
     Active Substance: ALBUMIN HUMAN
     Indication: Blood albumin decreased
     Dosage: 10 G, QD
     Route: 041
     Dates: start: 20250518, end: 20250522
  2. ALBURX [Suspect]
     Active Substance: ALBUMIN HUMAN
     Dosage: 10 G, QD
     Route: 041
     Dates: start: 20250529, end: 20250529

REACTIONS (3)
  - Hyperpyrexia [Recovered/Resolved]
  - Infusion related reaction [Recovered/Resolved]
  - Chills [Unknown]

NARRATIVE: CASE EVENT DATE: 20250529
